FAERS Safety Report 9846661 (Version 1)
Quarter: 2014Q1

REPORT INFORMATION
  Report Type: Spontaneous
  Country: US (occurrence: None)
  Receive Date: 20140123
  Receipt Date: 20140123
  Transmission Date: 20141002
  Serious: Yes (Other)
  Sender: FDA-Public Use
  Company Number: None

PATIENT
  Age: 60 Year
  Sex: Male
  Weight: 77 kg

DRUGS (7)
  1. CLOZAPINE [Suspect]
     Indication: SCHIZOPHRENIA
     Route: 048
     Dates: start: 20140110, end: 20140121
  2. DOCUSATE [Concomitant]
  3. IPRATROPIUM BROMIDE [Concomitant]
  4. LACTULOSE [Concomitant]
  5. FAMOTIDINE [Concomitant]
  6. DOXYCYCLINE [Concomitant]
  7. CEPACOL [Concomitant]

REACTIONS (2)
  - White blood cell count decreased [None]
  - Neutrophil count decreased [None]
